FAERS Safety Report 20955474 (Version 4)
Quarter: 2023Q2

REPORT INFORMATION
  Report Type: Spontaneous
  Country: JP (occurrence: JP)
  Receive Date: 20220614
  Receipt Date: 20230426
  Transmission Date: 20230722
  Serious: Yes (Hospitalization, Other)
  Sender: FDA-Public Use
  Company Number: JP-INSMED-2022-00773-JPAA

PATIENT
  Age: 61 Year
  Sex: Male
  Weight: 69.5 kg

DRUGS (12)
  1. ARIKAYCE [Suspect]
     Active Substance: AMIKACIN
     Indication: Mycobacterium avium complex infection
     Dosage: 590 MILLIGRAM, QD
     Route: 055
     Dates: start: 20211217, end: 20220318
  2. ETHAMBUTOL [Concomitant]
     Active Substance: ETHAMBUTOL HYDROCHLORIDE
     Dosage: 500 MILLIGRAM, QD
     Route: 048
  3. SITAFLOXACIN [Concomitant]
     Active Substance: SITAFLOXACIN
     Indication: Product used for unknown indication
     Dosage: UNK, BID
     Route: 048
  4. ERYTHROCIN [Concomitant]
     Active Substance: ERYTHROMYCIN LACTOBIONATE
     Indication: Product used for unknown indication
     Dosage: UNK, BID
     Route: 048
  5. RIFADIN [Concomitant]
     Active Substance: RIFAMPIN
     Indication: Product used for unknown indication
     Dosage: 450 MILLIGRAM, QD
     Route: 048
  6. CLARITHROMYCIN [Concomitant]
     Active Substance: CLARITHROMYCIN
     Indication: Product used for unknown indication
     Dosage: 400 MILLIGRAM, BID
     Route: 048
     Dates: start: 201408, end: 201712
  7. CLARITHROMYCIN [Concomitant]
     Active Substance: CLARITHROMYCIN
     Dosage: 400 UNK BID
     Route: 048
     Dates: start: 20191015, end: 202005
  8. AMIKACIN SULFATE [Concomitant]
     Active Substance: AMIKACIN SULFATE
     Indication: Product used for unknown indication
     Dosage: 1000 MILLIGRAM, TIW
     Route: 042
     Dates: start: 201906, end: 20191225
  9. NEXIUM [Concomitant]
     Active Substance: ESOMEPRAZOLE MAGNESIUM
     Indication: Product used for unknown indication
     Dosage: 20 MILLIGRAM, QD
     Route: 048
  10. OLMESARTAN [Concomitant]
     Active Substance: OLMESARTAN
     Indication: Product used for unknown indication
     Dosage: 20 MILLIGRAM, QD
     Route: 048
  11. AMLODIPINE BESYLATE [Concomitant]
     Active Substance: AMLODIPINE BESYLATE
     Indication: Product used for unknown indication
     Dosage: 5 MILLIGRAM, QD
     Route: 048
  12. LIVALO [Concomitant]
     Active Substance: PITAVASTATIN CALCIUM
     Indication: Product used for unknown indication
     Dosage: 1 MILLIGRAM, QD
     Route: 048

REACTIONS (4)
  - Mycobacterium avium complex infection [Unknown]
  - Hypersensitivity pneumonitis [Recovering/Resolving]
  - Laryngeal discomfort [Unknown]
  - Dysphonia [Recovering/Resolving]

NARRATIVE: CASE EVENT DATE: 20211201
